FAERS Safety Report 7052660-7 (Version None)
Quarter: 2010Q4

REPORT INFORMATION
  Report Type: 
  Country: None (occurrence: None)
  Receive Date: 20101019
  Receipt Date: 20101008
  Transmission Date: 20110411
  Serious: Yes (Life-Threatening)
  Sender: FDA-Public Use
  Company Number: GB-GENENTECH-307877

PATIENT
  Sex: Male
  Weight: 94 kg

DRUGS (13)
  1. RITUXIMAB [Suspect]
     Indication: B-CELL LYMPHOMA
     Dosage: 890 MG, QOD
     Route: 042
     Dates: start: 20100611, end: 20100930
  2. VINCRISTINE [Suspect]
     Indication: B-CELL LYMPHOMA
     Dosage: 2 MG, QOD
     Route: 042
     Dates: start: 20100611, end: 20100930
  3. CYCLOPHOSPHAMIDE [Suspect]
     Indication: B-CELL LYMPHOMA
     Dosage: 1500 MG, QOD
     Route: 042
     Dates: start: 20100611, end: 20100930
  4. PREDNISOLONE [Suspect]
     Indication: B-CELL LYMPHOMA
     Dosage: 80 MG, QOD
     Route: 042
     Dates: start: 20100611, end: 20101004
  5. ASPIRIN [Concomitant]
     Indication: MYOCARDIAL INFARCTION
     Dosage: 300 MG, QAM
     Route: 048
     Dates: start: 20101001, end: 20101001
  6. CLOPIDOGREL [Concomitant]
     Indication: MYOCARDIAL INFARCTION
     Dosage: 600 MG, QAM
     Route: 048
     Dates: start: 20101001, end: 20101001
  7. CLOPIDOGREL [Concomitant]
     Dosage: 75 MG, QAM
     Route: 048
     Dates: start: 20101002
  8. HEPARIN [Concomitant]
     Indication: MYOCARDIAL INFARCTION
     Dosage: UNK
     Route: 058
     Dates: start: 20101001, end: 20101001
  9. MORPHINE [Concomitant]
     Indication: MYOCARDIAL INFARCTION
     Dosage: 2.5 MG, PRN
     Route: 042
     Dates: start: 20101001
  10. FRUSEMIDE [Concomitant]
     Indication: MYOCARDIAL INFARCTION
     Dosage: 60 MG, QAM
     Route: 042
     Dates: start: 20101001
  11. ASPIRIN [Concomitant]
     Indication: MYOCARDIAL INFARCTION
     Dosage: 75 MG, QAM
     Route: 048
     Dates: start: 20101002
  12. ATORVASTATIN [Concomitant]
     Indication: MYOCARDIAL INFARCTION
     Dosage: 80 MG, QAM
     Route: 048
     Dates: start: 20101002
  13. RAMIPRIL [Concomitant]
     Indication: MYOCARDIAL INFARCTION
     Dosage: 2.5 MG, QAM
     Route: 048
     Dates: start: 20101002

REACTIONS (1)
  - MYOCARDIAL INFARCTION [None]
